FAERS Safety Report 8959724 (Version 1)
Quarter: 2012Q4

REPORT INFORMATION
  Report Type: 
  Country: AU (occurrence: AU)
  Receive Date: 20121212
  Receipt Date: 20121212
  Transmission Date: 20130627
  Serious: Yes (Other)
  Sender: FDA-Public Use
  Company Number: AU-ASTRAZENECA-2012SE80545

PATIENT
  Age: 69 Year
  Sex: Male

DRUGS (2)
  1. SYMBICORT [Suspect]
     Indication: ASTHMA
     Dosage: 400/12 TWICE A DAY
     Route: 055
     Dates: start: 2011
  2. ASMOL [Concomitant]
     Indication: ASTHMA
     Dosage: AS REQUIRED
     Dates: start: 2011

REACTIONS (2)
  - Dyspnoea [Recovered/Resolved]
  - Circumstance or information capable of leading to medication error [Recovered/Resolved]
